FAERS Safety Report 12655537 (Version 1)
Quarter: 2016Q3

REPORT INFORMATION
  Report Type: Spontaneous
  Country: FR (occurrence: FR)
  Receive Date: 20160816
  Receipt Date: 20160816
  Transmission Date: 20161109
  Serious: Yes (Hospitalization)
  Sender: FDA-Public Use
  Company Number: FR-ASTRAZENECA-2016SE87383

PATIENT
  Age: 30915 Day
  Sex: Female

DRUGS (10)
  1. COUMADINE [Concomitant]
     Active Substance: WARFARIN SODIUM
     Route: 048
     Dates: end: 20160630
  2. BISOPROLOL [Concomitant]
     Active Substance: BISOPROLOL
  3. BRICANYL [Concomitant]
     Active Substance: TERBUTALINE SULFATE
  4. ATACAND [Suspect]
     Active Substance: CANDESARTAN CILEXETIL
     Route: 048
     Dates: end: 20160630
  5. ATORVASTATINE [Concomitant]
     Active Substance: ATORVASTATIN
  6. LASILIX SPECIAL [Suspect]
     Active Substance: FUROSEMIDE
     Route: 048
  7. LASILIX SPECIAL [Suspect]
     Active Substance: FUROSEMIDE
     Route: 048
  8. LANTUS [Concomitant]
     Active Substance: INSULIN GLARGINE
  9. ATROVENT [Concomitant]
     Active Substance: IPRATROPIUM BROMIDE
  10. AUGMENTIN [Concomitant]
     Active Substance: AMOXICILLIN\CLAVULANATE POTASSIUM
     Indication: THROMBOPHLEBITIS SEPTIC
     Dates: end: 20160704

REACTIONS (1)
  - Acute kidney injury [Recovered/Resolved]

NARRATIVE: CASE EVENT DATE: 20160630
